FAERS Safety Report 10186059 (Version 1)
Quarter: 2014Q2

REPORT INFORMATION
  Report Type: Spontaneous
  Country: NO (occurrence: NO)
  Receive Date: 20140521
  Receipt Date: 20140521
  Transmission Date: 20141212
  Serious: Yes (Death)
  Sender: FDA-Public Use
  Company Number: NO-PFIZER INC-2014135701

PATIENT
  Age: 31 Year
  Sex: Male

DRUGS (6)
  1. NEURONTIN [Suspect]
     Dosage: UNK
  2. RIVOTRIL [Suspect]
     Dosage: UNK
  3. TEGRETOL [Suspect]
     Dosage: UNK
  4. TRIMONIL [Suspect]
     Dosage: UNK
  5. LAMICTAL [Suspect]
     Dosage: UNK
  6. KEPPRA [Suspect]
     Dosage: UNK

REACTIONS (8)
  - Acute hepatic failure [Fatal]
  - Circulatory collapse [None]
  - Liver transplant [None]
  - Hepatic steatosis [None]
  - Diabetic ketoacidosis [None]
  - General physical health deterioration [None]
  - Pharyngitis [None]
  - Malaise [None]
